FAERS Safety Report 15584093 (Version 1)
Quarter: 2018Q4

REPORT INFORMATION
  Report Type: Spontaneous
  Country: US (occurrence: US)
  Receive Date: 20181031
  Receipt Date: 20181031
  Transmission Date: 20190205
  Serious: No
  Sender: FDA-Public Use
  Company Number: None

PATIENT
  Age: 88 Year
  Sex: Male

DRUGS (1)
  1. ODOMZO [Suspect]
     Active Substance: SONIDEGIB
     Dates: start: 201801, end: 201809

REACTIONS (4)
  - Pneumonia [None]
  - Vomiting [None]
  - Gastric ulcer [None]
  - Nausea [None]

NARRATIVE: CASE EVENT DATE: 20181004
